FAERS Safety Report 8508430 (Version 3)
Quarter: 2012Q4

REPORT INFORMATION
  Report Type: 
  Country: US (occurrence: US)
  Receive Date: 20120412
  Receipt Date: 20121126
  Transmission Date: 20130627
  Serious: Yes (Hospitalization, Other)
  Sender: FDA-Public Use
  Company Number: US-ASTRAZENECA-2011SE41875

PATIENT
  Age: 54 Year
  Sex: Female

DRUGS (2)
  1. NEXIUM [Suspect]
     Route: 048
  2. OMEPRAZOLE [Suspect]
     Route: 048

REACTIONS (6)
  - Hypertension [Unknown]
  - Abdominal pain upper [Unknown]
  - Pain [Unknown]
  - Gastric disorder [Unknown]
  - Drug dose omission [Unknown]
  - Drug ineffective [Unknown]
